FAERS Safety Report 13639050 (Version 1)
Quarter: 2017Q2

REPORT INFORMATION
  Report Type: Spontaneous
  Country: DE (occurrence: DE)
  Receive Date: 20170609
  Receipt Date: 20170609
  Transmission Date: 20170830
  Serious: Yes (Other)
  Sender: FDA-Public Use
  Company Number: DE-BAYER-2017-106471

PATIENT
  Age: 56 Year
  Sex: Female

DRUGS (4)
  1. METRONIDAZOLE. [Suspect]
     Active Substance: METRONIDAZOLE
  2. DAPTOMYCIN. [Suspect]
     Active Substance: DAPTOMYCIN
  3. CEFUROXIME. [Suspect]
     Active Substance: CEFUROXIME
  4. MOXIFLOXACIN ORAL [Suspect]
     Active Substance: MOXIFLOXACIN
     Indication: ERYSIPELAS

REACTIONS (3)
  - Drug ineffective [None]
  - Dermatitis [None]
  - Skin necrosis [None]
